FAERS Safety Report 10264517 (Version 2)
Quarter: 2014Q2

REPORT INFORMATION
  Report Type: Spontaneous
  Country: US (occurrence: US)
  Receive Date: 20140627
  Receipt Date: 20140627
  Transmission Date: 20141212
  Serious: Yes (Other)
  Sender: FDA-Public Use
  Company Number: US-BRACCO-010484

PATIENT
  Age: 45 Year
  Sex: Female

DRUGS (5)
  1. MULTIHANCE [Suspect]
     Indication: NUCLEAR MAGNETIC RESONANCE IMAGING BRAIN
     Route: 042
     Dates: start: 20140113, end: 20140113
  2. ASPIRIN [Concomitant]
  3. LIPITOR [Concomitant]
  4. COREG [Concomitant]
  5. IMDUR [Concomitant]

REACTIONS (1)
  - Anaphylactic reaction [Recovered/Resolved]
